FAERS Safety Report 6222472-2 (Version None)
Quarter: 2009Q2

REPORT INFORMATION
  Report Type: 
  Country: None (occurrence: None)
  Receive Date: 20090608
  Receipt Date: 20090528
  Transmission Date: 20091009
  Serious: Yes (Other)
  Sender: FDA-Public Use
  Company Number: US-GENENTECH-284357

PATIENT

DRUGS (3)
  1. HERCEPTIN [Suspect]
     Indication: DRUG USE FOR UNKNOWN INDICATION
     Dosage: UNK
     Route: 065
  2. CAPECITABINE [Suspect]
     Indication: BREAST CANCER METASTATIC
     Dosage: 1000 MG, BID/D1-14/Q3W
     Route: 048
     Dates: start: 20090117, end: 20090515
  3. ABRAXANE [Suspect]
     Indication: DRUG USE FOR UNKNOWN INDICATION
     Dosage: UNK
     Route: 065

REACTIONS (5)
  - GAIT DISTURBANCE [None]
  - MUCOSAL INFLAMMATION [None]
  - PAIN IN EXTREMITY [None]
  - SKIN EXFOLIATION [None]
  - SKIN ULCER HAEMORRHAGE [None]
